FAERS Safety Report 10899319 (Version 1)
Quarter: 2015Q1

REPORT INFORMATION
  Report Type: Spontaneous
  Country: US (occurrence: US)
  Receive Date: 20150309
  Receipt Date: 20150309
  Transmission Date: 20150721
  Serious: No
  Sender: FDA-Public Use
  Company Number: US-BAYER-2015-023320

PATIENT
  Age: 89 Year
  Sex: Female
  Weight: 70.3 kg

DRUGS (1)
  1. ALEVE PM [Suspect]
     Active Substance: DIPHENHYDRAMINE HYDROCHLORIDE\NAPROXEN SODIUM
     Indication: SLEEP DISORDER THERAPY
     Dosage: UNK, PRN
     Route: 048
     Dates: start: 201501, end: 20150211

REACTIONS (3)
  - Medication error [None]
  - Insomnia [Recovered/Resolved]
  - Medication error [None]

NARRATIVE: CASE EVENT DATE: 201501
